FAERS Safety Report 4607599-0 (Version None)
Quarter: 2005Q1

REPORT INFORMATION
  Report Type: 
  Country: None (occurrence: None)
  Receive Date: 20050314
  Receipt Date: 20041214
  Transmission Date: 20050727
  Serious: Yes (Other)
  Sender: FDA-Public Use
  Company Number: PHBS2004CA16962

PATIENT
  Age: 45 Year
  Sex: Female
  Weight: 42 kg

DRUGS (13)
  1. TRILEPTAL [Suspect]
     Indication: CONVULSION
     Dosage: 150 MG, BID
     Route: 048
     Dates: start: 20040601, end: 20040701
  2. TRILEPTAL [Suspect]
     Dosage: 300 MG, BID
     Route: 048
     Dates: start: 20040705
  3. AMIODARONE [Concomitant]
     Dosage: 200 MG, QD
     Route: 065
  4. COUMADIN [Concomitant]
     Dosage: 1 MG, QD
  5. LIPITOR [Concomitant]
     Dosage: 10 MG, QD
     Route: 065
  6. AMATINE [Concomitant]
  7. RENAGEL [Concomitant]
     Dosage: 800 MG/D
     Route: 065
  8. NEXIUM [Concomitant]
     Dosage: 40 MG, QD
     Route: 065
  9. EXPREX [Concomitant]
     Dosage: 6000 MG, QW3
     Route: 065
  10. REPLANT [Concomitant]
     Route: 065
  11. ROCALTROL [Concomitant]
     Dosage: 0.25 MG, QD
  12. TYLENOL (CAPLET) [Concomitant]
     Dosage: UNK, PRN
     Route: 065
  13. AMATINE [Suspect]
     Dosage: 2.5 MG, TID
     Route: 065

REACTIONS (7)
  - BLOOD PRESSURE ORTHOSTATIC DECREASED [None]
  - DIZZINESS [None]
  - FEELING ABNORMAL [None]
  - HAEMODIALYSIS [None]
  - HYPOTENSION [None]
  - POST PROCEDURAL COMPLICATION [None]
  - REFUSAL OF TREATMENT BY PATIENT [None]
